FAERS Safety Report 5316961-2 (Version None)
Quarter: 2007Q2

REPORT INFORMATION
  Report Type: 
  Country: None (occurrence: None)
  Receive Date: 20070504
  Receipt Date: 20070424
  Transmission Date: 20071010
  Serious: Yes (Other)
  Sender: FDA-Public Use
  Company Number: GB-ALLERGAN-0703054US

PATIENT
  Age: 49 Year
  Sex: Female

DRUGS (2)
  1. VISTABEL [Suspect]
     Indication: SKIN WRINKLING
     Dosage: 39 UNITS, SINGLE
     Route: 030
     Dates: start: 20070219, end: 20070219
  2. VISTABEL [Suspect]
     Dosage: 8 UNITS, SINGLE
     Route: 030
     Dates: start: 20070305, end: 20070305

REACTIONS (9)
  - ARTHRALGIA [None]
  - FATIGUE [None]
  - HEADACHE [None]
  - INFLUENZA LIKE ILLNESS [None]
  - MALAISE [None]
  - SINUS HEADACHE [None]
  - SKIN TIGHTNESS [None]
  - SKIN WRINKLING [None]
  - SWELLING FACE [None]
